FAERS Safety Report 22251475 (Version 1)
Quarter: 2023Q2

REPORT INFORMATION
  Report Type: Spontaneous
  Country: US (occurrence: US)
  Receive Date: 20230425
  Receipt Date: 20230425
  Transmission Date: 20230721
  Serious: No
  Sender: FDA-Public Use
  Company Number: US-BAYER-2023A049972

PATIENT
  Age: 70 Year
  Sex: Male

DRUGS (3)
  1. ASTEPRO [Suspect]
     Active Substance: AZELASTINE HYDROCHLORIDE
     Indication: Pyrexia
     Dosage: UNK
     Route: 045
     Dates: start: 202304, end: 20230413
  2. ASTEPRO [Suspect]
     Active Substance: AZELASTINE HYDROCHLORIDE
     Indication: Hypersensitivity
  3. ASTEPRO [Suspect]
     Active Substance: AZELASTINE HYDROCHLORIDE
     Indication: Nasopharyngitis

REACTIONS (2)
  - Product use in unapproved indication [None]
  - Upper-airway cough syndrome [None]

NARRATIVE: CASE EVENT DATE: 20230401
